FAERS Safety Report 6146073-X (Version None)
Quarter: 2009Q2

REPORT INFORMATION
  Report Type: 
  Country: None (occurrence: None)
  Receive Date: 20090407
  Receipt Date: 20090327
  Transmission Date: 20091009
  Serious: Yes (Other)
  Sender: FDA-Public Use
  Company Number: US-ELI_LILLY_AND_COMPANY-US200903007280

PATIENT
  Sex: Female

DRUGS (2)
  1. FORTEO [Suspect]
  2. BONIVA [Concomitant]

REACTIONS (2)
  - ARTHRALGIA [None]
  - HEART INJURY [None]
